FAERS Safety Report 5131865-6 (Version None)
Quarter: 2006Q4

REPORT INFORMATION
  Report Type: 
  Country: None (occurrence: None)
  Receive Date: 20061016
  Receipt Date: 20060928
  Transmission Date: 20070319
  Serious: Yes (Hospitalization)
  Sender: FDA-Public Use
  Company Number: 2006123347

PATIENT
  Age: 45 Year
  Sex: Female

DRUGS (1)
  1. HYDROXYZINE HYDROCHLORIDE [Suspect]
     Indication: PRURITUS
     Dosage: 25 MG ONCE POSTOPERATIVELY, INTRAMUSCULAR
     Route: 030

REACTIONS (13)
  - CELLULITIS [None]
  - FAT NECROSIS [None]
  - GAIT DISTURBANCE [None]
  - HAEMORRHAGE [None]
  - INJECTION SITE DISCOLOURATION [None]
  - INJECTION SITE PAIN [None]
  - MUSCLE NECROSIS [None]
  - MYOSITIS [None]
  - PAIN IN EXTREMITY [None]
  - POST PROCEDURAL COMPLICATION [None]
  - POSTOPERATIVE WOUND INFECTION [None]
  - SKIN GRAFT [None]
  - WOUND INFECTION STAPHYLOCOCCAL [None]
